FAERS Safety Report 8513331-0 (Version None)
Quarter: 2012Q3

REPORT INFORMATION
  Report Type: 
  Country: None (occurrence: None)
  Receive Date: 20120716
  Receipt Date: 20120710
  Transmission Date: 20120928
  Serious: Yes (Hospitalization, Other)
  Sender: FDA-Public Use
  Company Number: PHHY2012MX060091

PATIENT
  Sex: Female

DRUGS (1)
  1. DIOVAN [Suspect]
     Indication: HYPERTENSION
     Dosage: 1 TABLET (160 MG) DAILY
     Dates: start: 20070101, end: 20111101

REACTIONS (3)
  - BREAST CANCER [None]
  - DIABETES MELLITUS [None]
  - BLOOD PRESSURE DECREASED [None]
